FAERS Safety Report 4377457-8 (Version None)
Quarter: 2004Q2

REPORT INFORMATION
  Report Type: 
  Country: None (occurrence: None)
  Receive Date: 20040615
  Receipt Date: 20040330
  Transmission Date: 20050107
  Serious: Yes (Hospitalization)
  Sender: FDA-Public Use
  Company Number: PHBS2004FI04260

PATIENT
  Age: 57 Year
  Sex: Female

DRUGS (3)
  1. DIOVAN COMP [Suspect]
     Route: 048
  2. NORVASC [Concomitant]
     Route: 048
  3. DIUREX [Concomitant]

REACTIONS (2)
  - ALLERGIC GRANULOMATOUS ANGIITIS [None]
  - VASCULITIS [None]
